FAERS Safety Report 6522558-9 (Version None)
Quarter: 2009Q4

REPORT INFORMATION
  Report Type: 
  Country: None (occurrence: None)
  Receive Date: 20091230
  Receipt Date: 20091217
  Transmission Date: 20100525
  Serious: Yes (Other)
  Sender: FDA-Public Use
  Company Number: IT-CELGENEUS-083-21880-09110009

PATIENT
  Sex: Female

DRUGS (5)
  1. REVLIMID [Suspect]
     Indication: MULTIPLE MYELOMA
     Route: 048
     Dates: start: 20090922, end: 20091013
  2. SOLDESAM [Concomitant]
     Indication: MULTIPLE MYELOMA
     Route: 048
     Dates: start: 20090922, end: 20091009
  3. COAPROVEL [Concomitant]
     Indication: ESSENTIAL HYPERTENSION
     Dosage: 150MG/12.5MG
     Route: 048
     Dates: start: 20050101, end: 20091013
  4. ANTRA [Concomitant]
     Indication: PROPHYLAXIS
     Route: 048
     Dates: start: 20070101, end: 20091013
  5. ZYLORIC [Concomitant]
     Indication: PROPHYLAXIS
     Route: 048
     Dates: start: 20090922, end: 20091013

REACTIONS (2)
  - APLASTIC ANAEMIA [None]
  - NEUTROPENIA [None]
